FAERS Safety Report 7279662-X (Version None)
Quarter: 2011Q1

REPORT INFORMATION
  Report Type: 
  Country: None (occurrence: None)
  Receive Date: 20110208
  Receipt Date: 20110126
  Transmission Date: 20110831
  Serious: Yes (Death, Other)
  Sender: FDA-Public Use
  Company Number: JP-CELGENEUS-087-21880-10102476

PATIENT
  Sex: Female

DRUGS (14)
  1. ATELEC [Concomitant]
     Indication: HYPERTENSION
     Route: 048
     Dates: start: 20101005, end: 20101014
  2. REVLIMID [Suspect]
     Route: 048
     Dates: start: 20100101, end: 20101220
  3. TECIPUL [Concomitant]
     Indication: MULTIPLE MYELOMA
     Route: 048
     Dates: start: 20100910, end: 20101103
  4. CALONAL [Concomitant]
     Indication: PROPHYLAXIS
     Route: 048
     Dates: start: 20101023, end: 20101023
  5. MAGLAX [Concomitant]
     Route: 048
     Dates: start: 20100302, end: 20101103
  6. REVLIMID [Suspect]
     Indication: MULTIPLE MYELOMA
     Route: 048
     Dates: start: 20101007, end: 20101021
  7. MUCOSTA [Concomitant]
     Indication: PROPHYLAXIS
     Route: 048
     Dates: start: 20100830, end: 20101103
  8. TAKEPRON [Concomitant]
     Indication: PROPHYLAXIS
     Route: 048
     Dates: start: 20101014, end: 20101103
  9. LENADEX [Suspect]
     Indication: MULTIPLE MYELOMA
     Route: 048
     Dates: start: 20101015, end: 20101018
  10. KADIAN [Suspect]
     Indication: MULTIPLE MYELOMA
     Route: 048
     Dates: start: 20100915, end: 20101027
  11. LENADEX [Suspect]
     Route: 048
     Dates: start: 20101023, end: 20101026
  12. VOLTAREN [Concomitant]
     Indication: MULTIPLE MYELOMA
     Route: 048
     Dates: start: 20100830, end: 20101020
  13. ABILIFY [Concomitant]
     Route: 065
     Dates: start: 20101020, end: 20101103
  14. BLOPRESS [Concomitant]
     Indication: HYPERTENSION
     Route: 048
     Dates: start: 20101005, end: 20101014

REACTIONS (5)
  - NEUTROPENIA [None]
  - HAEMOGLOBIN DECREASED [None]
  - DECREASED APPETITE [None]
  - INFECTION [None]
  - PYREXIA [None]
